FAERS Safety Report 11397317 (Version 3)
Quarter: 2020Q3

REPORT INFORMATION
  Report Type: Report from Study
  Country: RU (occurrence: RU)
  Receive Date: 20150819
  Receipt Date: 20180611
  Transmission Date: 20201104
  Serious: Yes (Death, Hospitalization)
  Sender: FDA-Public Use
  Company Number: RU-JNJFOC-20150722383

PATIENT
  Age: 58 Year
  Sex: Male
  Weight: 92.8 kg

DRUGS (8)
  1. PERINDOPRIL [Concomitant]
     Active Substance: PERINDOPRIL
     Route: 065
     Dates: start: 20060526
  2. TORASEMID [Concomitant]
     Active Substance: TORSEMIDE
     Route: 065
     Dates: start: 20140707, end: 20150727
  3. ATORVASTATIN [Concomitant]
     Active Substance: ATORVASTATIN
     Route: 065
     Dates: start: 20120611
  4. RIVAROXABAN [Suspect]
     Active Substance: RIVAROXABAN
     Indication: CARDIAC FAILURE CHRONIC
     Route: 048
     Dates: start: 20140711
  5. ASA [Concomitant]
     Active Substance: ASPIRIN
     Route: 065
     Dates: start: 20140705, end: 20150731
  6. EPLERENONE. [Concomitant]
     Active Substance: EPLERENONE
     Route: 065
     Dates: start: 20140625, end: 20150719
  7. RIVAROXABAN [Suspect]
     Active Substance: RIVAROXABAN
     Indication: CARDIAC FAILURE CHRONIC
     Route: 048
     Dates: start: 20150730, end: 20150801
  8. METOPROLOL. [Concomitant]
     Active Substance: METOPROLOL
     Route: 065
     Dates: start: 20060526

REACTIONS (1)
  - Erosive duodenitis [Not Recovered/Not Resolved]

NARRATIVE: CASE EVENT DATE: 201506
